FAERS Safety Report 19262969 (Version 2)
Quarter: 2021Q2

REPORT INFORMATION
  Report Type: Report from Study
  Country: None (occurrence: CO)
  Receive Date: 20210517
  Receipt Date: 20210623
  Transmission Date: 20210717
  Serious: Yes (Death, Hospitalization, Other)
  Sender: FDA-Public Use
  Company Number: CO-ABBVIE-21K-036-3907026-00

PATIENT
  Age: 70 Year
  Sex: Male
  Weight: 58 kg

DRUGS (2)
  1. ZEMPLAR [Suspect]
     Active Substance: PARICALCITOL
     Indication: HYPERPARATHYROIDISM SECONDARY
     Dosage: POST DIALYSIS
     Route: 042
     Dates: start: 20150504, end: 20210412
  2. ZEMPLAR [Suspect]
     Active Substance: PARICALCITOL
     Indication: CHRONIC KIDNEY DISEASE

REACTIONS (11)
  - Necrosis [Recovering/Resolving]
  - Cardiovascular disorder [Not Recovered/Not Resolved]
  - Musculoskeletal disorder [Not Recovered/Not Resolved]
  - Arthralgia [Recovering/Resolving]
  - Procedural site reaction [Recovering/Resolving]
  - COVID-19 [Not Recovered/Not Resolved]
  - Pain in extremity [Recovering/Resolving]
  - Death [Fatal]
  - Stenosis [Recovering/Resolving]
  - Peripheral vascular disorder [Recovering/Resolving]
  - Gait disturbance [Recovering/Resolving]

NARRATIVE: CASE EVENT DATE: 202011
